FAERS Safety Report 18286226 (Version 1)
Quarter: 2020Q3

REPORT INFORMATION
  Report Type: Report from Study
  Country: US (occurrence: US)
  Receive Date: 20200919
  Receipt Date: 20200919
  Transmission Date: 20201103
  Serious: No
  Sender: FDA-Public Use
  Company Number: US-INCYTE CORPORATION-2020IN007931

PATIENT

DRUGS (1)
  1. JAKAFI [Suspect]
     Active Substance: RUXOLITINIB
     Indication: MYELOFIBROSIS
     Dosage: 5 MG, 4 TABLETS BID
     Route: 048
     Dates: start: 20200521

REACTIONS (3)
  - Accident [Unknown]
  - Skin abrasion [Unknown]
  - Product prescribing issue [Unknown]
